FAERS Safety Report 17224389 (Version 1)
Quarter: 2020Q3

REPORT INFORMATION
  Report Type: Report from Study
  Country: HN (occurrence: HN)
  Receive Date: 20200102
  Receipt Date: 20200102
  Transmission Date: 20201105
  Serious: Yes (Other)
  Sender: FDA-Public Use
  Company Number: NVSC2019HN081638

PATIENT
  Age: 74 Year
  Sex: Male

DRUGS (2)
  1. GALVUS [Suspect]
     Active Substance: VILDAGLIPTIN
     Indication: PRODUCT USED FOR UNKNOWN INDICATION
     Dosage: 50 MG, STARTED 6 MONTHS AGO
     Route: 065
  2. GALVUS MET [Suspect]
     Active Substance: METFORMIN HYDROCHLORIDE\VILDAGLIPTIN
     Indication: PRODUCT USED FOR UNKNOWN INDICATION
     Dosage: STARTED 2 YEARS AGO (METFORMIN 500MG, VILDAGLIPTIN 50MG)
     Route: 065

REACTIONS (5)
  - Blood cholesterol abnormal [Unknown]
  - Epilepsy [Unknown]
  - Drug intolerance [Unknown]
  - Illness [Unknown]
  - Cardiac disorder [Unknown]
